FAERS Safety Report 8260927-X (Version None)
Quarter: 2012Q2

REPORT INFORMATION
  Report Type: 
  Country: None (occurrence: None)
  Receive Date: 20120402
  Receipt Date: 20120317
  Transmission Date: 20120825
  Serious: No
  Sender: FDA-Public Use
  Company Number: 2012-00092

PATIENT
  Age: 56 Year
  Sex: Female

DRUGS (1)
  1. ZICAM COLD REMEDY PLUS LIQUI-LOZ [Suspect]
     Indication: NASOPHARYNGITIS
     Dosage: 1 LIQUILOZ EVERY 4-5 HOURS
     Dates: start: 20120315, end: 20120316

REACTIONS (2)
  - DYSGEUSIA [None]
  - AGEUSIA [None]
